FAERS Safety Report 19949238 (Version 1)
Quarter: 2021Q4

REPORT INFORMATION
  Report Type: Spontaneous
  Country: ES (occurrence: ES)
  Receive Date: 20211013
  Receipt Date: 20211013
  Transmission Date: 20220303
  Serious: Yes (Other)
  Sender: FDA-Public Use
  Company Number: None

PATIENT
  Age: 36 Year
  Sex: Female
  Weight: 66 kg

DRUGS (2)
  1. LAMICTAL [Suspect]
     Active Substance: LAMOTRIGINE
     Indication: Migraine with aura
     Dosage: 25 MG, QD, (1 PILL AT NIGHT.IT WAS THE THIRD DAY OF USE)
     Route: 048
     Dates: start: 20210930, end: 20211002
  2. ZONEGRAN [Concomitant]
     Active Substance: ZONISAMIDE
     Indication: Migraine with aura
     Dosage: 100 MG, BID, ((2 PILLS IN THE MORNING AND TWO IN THE EVENING)
     Route: 048
     Dates: start: 20210310, end: 20211002

REACTIONS (1)
  - Sleep paralysis [Recovered/Resolved]

NARRATIVE: CASE EVENT DATE: 20211002
